FAERS Safety Report 4289891-5 (Version None)
Quarter: 2004Q1

REPORT INFORMATION
  Report Type: 
  Country: None (occurrence: None)
  Receive Date: 20040205
  Receipt Date: 20040123
  Transmission Date: 20041129
  Serious: No
  Sender: FDA-Public Use
  Company Number: 04H-028-0247634-00

PATIENT
  Age: 74 Year
  Sex: Male

DRUGS (1)
  1. FENTANYL CITRATE INJECTION, USP, 0.05MG/ML AMPULE/FENTANYL CITRATE [Suspect]
     Dosage: INTRAVENOUS
     Route: 042
     Dates: start: 20040101

REACTIONS (2)
  - DRUG EFFECT INCREASED [None]
  - OXYGEN SATURATION DECREASED [None]
